FAERS Safety Report 6864720-1 (Version None)
Quarter: 2010Q3

REPORT INFORMATION
  Report Type: 
  Country: None (occurrence: None)
  Receive Date: 20100721
  Receipt Date: 20080329
  Transmission Date: 20110219
  Serious: No
  Sender: FDA-Public Use
  Company Number: US-PFIZER INC-2008029768

PATIENT
  Sex: Female

DRUGS (8)
  1. CHANTIX [Suspect]
     Indication: SMOKING CESSATION THERAPY
     Route: 048
     Dates: start: 20080325
  2. QVAR 40 [Concomitant]
     Route: 055
  3. NASACORT [Concomitant]
  4. MONTELUKAST SODIUM [Concomitant]
  5. CITALOPRAM [Concomitant]
  6. ATENOLOL [Concomitant]
  7. LORATADINE [Concomitant]
  8. PSEUDOEPHEDRINE [Concomitant]

REACTIONS (5)
  - DIARRHOEA [None]
  - NASAL CONGESTION [None]
  - NASOPHARYNGITIS [None]
  - NAUSEA [None]
  - OROPHARYNGEAL PAIN [None]
